FAERS Safety Report 19407725 (Version 2)
Quarter: 2021Q2

REPORT INFORMATION
  Report Type: Spontaneous
  Country: US (occurrence: US)
  Receive Date: 20210612
  Receipt Date: 20210624
  Transmission Date: 20210717
  Serious: Yes (Other)
  Sender: FDA-Public Use
  Company Number: US-GLAXOSMITHKLINE-US2021AMR122219

PATIENT
  Sex: Female
  Weight: 238 kg

DRUGS (1)
  1. WELLBUTRIN [Suspect]
     Active Substance: BUPROPION HYDROCHLORIDE
     Indication: DEPRESSION
     Dosage: UNK
     Dates: start: 202101, end: 202106

REACTIONS (5)
  - Rash [Unknown]
  - Ill-defined disorder [Unknown]
  - Urticaria [Unknown]
  - Constipation [Unknown]
  - Skin exfoliation [Unknown]
